FAERS Safety Report 8319611-6 (Version None)
Quarter: 2012Q2

REPORT INFORMATION
  Report Type: 
  Country: None (occurrence: None)
  Receive Date: 20120427
  Receipt Date: 20120418
  Transmission Date: 20120825
  Serious: Yes (Other)
  Sender: FDA-Public Use
  Company Number: PHHY2012BR034023

PATIENT
  Sex: Female

DRUGS (2)
  1. RASILEZ [Suspect]
     Dosage: 300 MG, UNK
  2. DIOVAN [Suspect]
     Dosage: UNK UKN, UNK

REACTIONS (4)
  - SWELLING FACE [None]
  - FACE OEDEMA [None]
  - DIABETES MELLITUS [None]
  - HYPERTENSION [None]
